FAERS Safety Report 12207937 (Version 1)
Quarter: 2016Q1

REPORT INFORMATION
  Report Type: Not Available
  Country: None (occurrence: US)
  Receive Date: 20160324
  Receipt Date: 20160324
  Transmission Date: 20160526
  Serious: No
  Sender: FDA-Public Use
  Company Number: US-MERZ NORTH AMERICA, INC.-16MRZ-00202

PATIENT
  Sex: Female
  Weight: 79.9 kg

DRUGS (4)
  1. CEPHELEXIN [Concomitant]
     Dosage: 500MG BY MOUTH 3 TIMES A DAY
  2. BOTOX [Concomitant]
     Active Substance: ONABOTULINUMTOXINA
  3. ACCUTANE [Concomitant]
     Active Substance: ISOTRETINOIN
     Indication: ACNE CYSTIC
  4. XEOMIN [Suspect]
     Active Substance: INCOBOTULINUMTOXINA
     Indication: MIGRAINE
     Dosage: 25 UNITS TO FOREHEAD
     Dates: start: 20151124, end: 20151124

REACTIONS (9)
  - Skin burning sensation [None]
  - Erythema [None]
  - Pruritus [None]
  - Feeling hot [None]
  - Rash [None]
  - Skin discomfort [None]
  - Influenza like illness [None]
  - Swelling face [None]
  - Throat tightness [None]
